FAERS Safety Report 23856013 (Version 3)
Quarter: 2024Q3

REPORT INFORMATION
  Report Type: Spontaneous
  Country: AU (occurrence: AU)
  Receive Date: 20240515
  Receipt Date: 20240709
  Transmission Date: 20241017
  Serious: Yes (Hospitalization, Other)
  Sender: ALEXION PHARMACEUTICALS
  Company Number: AU-AstraZeneca-CH-00615159A

PATIENT
  Sex: Female

DRUGS (1)
  1. SOLIRIS [Suspect]
     Active Substance: ECULIZUMAB
     Indication: Paroxysmal nocturnal haemoglobinuria
     Dosage: UNK
     Route: 065

REACTIONS (3)
  - Paroxysmal nocturnal haemoglobinuria [Unknown]
  - Condition aggravated [Unknown]
  - Exposure during pregnancy [Unknown]
